FAERS Safety Report 25883943 (Version 1)
Quarter: 2025Q4

REPORT INFORMATION
  Report Type: Spontaneous
  Country: EU (occurrence: EU)
  Receive Date: 20251006
  Receipt Date: 20251006
  Transmission Date: 20260117
  Serious: Yes (Hospitalization, Other)
  Sender: AUROBINDO
  Company Number: EU-ROCHE-1085994

PATIENT
  Age: 68 Year
  Sex: Female

DRUGS (2)
  1. DOCETAXEL [Suspect]
     Active Substance: DOCETAXEL
     Indication: HER2 positive breast cancer
     Dosage: 75 MILLIGRAM/SQ. METER (ONLY ONE, LAST DOSE PRIO TO SAE WAS TAKEN ON 22/JUN/2012, DOSAGE FORM 123 MG
     Route: 042
     Dates: start: 20120622
  2. TRASTUZUMAB [Suspect]
     Active Substance: TRASTUZUMAB
     Indication: HER2 positive breast cancer
     Dosage: 8 MILLIGRAM/KILOGRAM (LAST DOSE PRIOR TO SAE WAS TAKEN ON 21/JUN/2012,DOSAGE FORM 544 MG. (8MG/KG))
     Route: 042
     Dates: start: 20120621

REACTIONS (3)
  - Febrile neutropenia [Recovered/Resolved]
  - Device related thrombosis [Recovered/Resolved]
  - Vascular device infection [Recovered/Resolved]

NARRATIVE: CASE EVENT DATE: 20120705
